FAERS Safety Report 11942041 (Version 2)
Quarter: 2016Q1

REPORT INFORMATION
  Report Type: Spontaneous
  Country: US (occurrence: US)
  Receive Date: 20160124
  Receipt Date: 20160125
  Transmission Date: 20160526
  Serious: No
  Sender: FDA-Public Use
  Company Number: US-HOSPIRA-2788623

PATIENT
  Age: 4 Year
  Sex: Male
  Weight: 15.7 kg

DRUGS (1)
  1. PRECEDEX [Suspect]
     Active Substance: DEXMEDETOMIDINE HYDROCHLORIDE
     Indication: SEDATIVE THERAPY
     Dosage: 1
     Route: 040
     Dates: start: 20150303, end: 20150303

REACTIONS (3)
  - Drug administered to patient of inappropriate age [Recovered/Resolved]
  - Therapy cessation [Recovered/Resolved]
  - No adverse event [None]

NARRATIVE: CASE EVENT DATE: 20150303
